FAERS Safety Report 6731739-0 (Version None)
Quarter: 2010Q2

REPORT INFORMATION
  Report Type: 
  Country: None (occurrence: None)
  Receive Date: 20100519
  Receipt Date: 20100507
  Transmission Date: 20101027
  Serious: Yes (Other)
  Sender: FDA-Public Use
  Company Number: US-PFIZER INC-2010058772

PATIENT
  Sex: Female
  Weight: 69 kg

DRUGS (5)
  1. TOVIAZ [Suspect]
     Indication: URINARY INCONTINENCE
     Dosage: 4 MG, 1X/DAY
     Route: 048
     Dates: start: 20100101
  2. KLOR-CON [Interacting]
     Dosage: UNK
  3. ATENOLOL/HYDROCHLOROTHIAZIDE [Concomitant]
     Indication: HYPERTENSION
     Dosage: [ATENOLOL 50MG]/[HYDROCHLOROTHIAZIDE 25 MG]
  4. PREMARIN [Concomitant]
     Dosage: 0.65 MG, UNK
  5. PROZAC [Concomitant]
     Dosage: 20 MG, UNK

REACTIONS (1)
  - DRUG INTERACTION [None]
